FAERS Safety Report 18025928 (Version 1)
Quarter: 2020Q3

REPORT INFORMATION
  Report Type: Spontaneous
  Country: IN (occurrence: IN)
  Receive Date: 20200715
  Receipt Date: 20200715
  Transmission Date: 20201103
  Serious: Yes (Death)
  Sender: FDA-Public Use
  Company Number: IN-FRESENIUS KABI-FK202007155

PATIENT
  Age: 68 Year
  Sex: Male

DRUGS (4)
  1. MONTELUKAST [Suspect]
     Active Substance: MONTELUKAST SODIUM
     Indication: STEVENS-JOHNSON SYNDROME
     Route: 065
  2. SILVER SULFADIAZENE [Suspect]
     Active Substance: SILVER SULFADIAZINE
     Indication: STEVENS-JOHNSON SYNDROME
     Dosage: UNKNOWN
     Route: 065
  3. METHYLPREDNISOLONE (MANUFACTURER UNKNOWN) [Suspect]
     Active Substance: METHYLPREDNISOLONE
     Indication: STEVENS-JOHNSON SYNDROME
     Route: 065
  4. HYDROXYZINE (MANUFACTURER UNKNOWN) [Suspect]
     Active Substance: HYDROXYZINE HYDROCHLORIDE
     Indication: STEVENS-JOHNSON SYNDROME
     Route: 065

REACTIONS (1)
  - Treatment failure [Fatal]
